FAERS Safety Report 4370156-8 (Version None)
Quarter: 2004Q2

REPORT INFORMATION
  Report Type: 
  Country: None (occurrence: None)
  Receive Date: 20040603
  Receipt Date: 20040426
  Transmission Date: 20050107
  Serious: No
  Sender: FDA-Public Use
  Company Number: US-BRISTOL-MYERS SQUIBB COMPANY-12571196

PATIENT
  Age: 49 Year
  Sex: Male

DRUGS (4)
  1. ABILIFY [Suspect]
     Indication: BIPOLAR DISORDER
     Route: 048
  2. ABILIFY [Suspect]
     Indication: AGITATION
     Route: 048
  3. REMERON [Concomitant]
  4. COGENTIN [Concomitant]

REACTIONS (2)
  - MUSCLE TWITCHING [None]
  - TARDIVE DYSKINESIA [None]
